FAERS Safety Report 12971631 (Version 4)
Quarter: 2017Q1

REPORT INFORMATION
  Report Type: Spontaneous
  Country: US (occurrence: US)
  Receive Date: 20161123
  Receipt Date: 20170328
  Transmission Date: 20170428
  Serious: Yes (Hospitalization)
  Sender: FDA-Public Use
  Company Number: US-LUNDBECK-DKLU2022931

PATIENT
  Age: 34 Year
  Sex: Male

DRUGS (5)
  1. NORTHERA [Suspect]
     Active Substance: DROXIDOPA
     Indication: AUTONOMIC NEUROPATHY
     Dosage: SCHEDULE B
     Route: 065
  2. NORTHERA [Suspect]
     Active Substance: DROXIDOPA
     Route: 065
     Dates: start: 20161026
  3. LEXAPRO [Suspect]
     Active Substance: ESCITALOPRAM OXALATE
     Indication: PRODUCT USED FOR UNKNOWN INDICATION
     Route: 065
  4. NORTHERA [Suspect]
     Active Substance: DROXIDOPA
     Dosage: SCHEDULE B
     Route: 048
     Dates: start: 201611
  5. NORTHERA [Suspect]
     Active Substance: DROXIDOPA
     Route: 065
     Dates: start: 20161022

REACTIONS (9)
  - Syncope [Unknown]
  - Early satiety [Unknown]
  - Orthostatic hypotension [Unknown]
  - Muscular weakness [Unknown]
  - Vomiting [Unknown]
  - Chest pain [Unknown]
  - Dizziness postural [Unknown]
  - Urinary tract infection pseudomonal [Unknown]
  - Dizziness [Unknown]

NARRATIVE: CASE EVENT DATE: 20161116
